FAERS Safety Report 7702611-4 (Version None)
Quarter: 2011Q3

REPORT INFORMATION
  Report Type: 
  Country: None (occurrence: None)
  Receive Date: 20110823
  Receipt Date: 20110816
  Transmission Date: 20111222
  Serious: No
  Sender: FDA-Public Use
  Company Number: US-BIOGENIDEC-2011BI031313

PATIENT
  Age: 59 Year
  Sex: Male

DRUGS (1)
  1. AVONEX [Suspect]
     Indication: MULTIPLE SCLEROSIS
     Route: 030
     Dates: start: 20030717

REACTIONS (5)
  - PALLOR [None]
  - MUSCULOSKELETAL PAIN [None]
  - ARTHRALGIA [None]
  - NAUSEA [None]
  - MYALGIA [None]
